FAERS Safety Report 9365644 (Version 1)
Quarter: 2013Q2

REPORT INFORMATION
  Report Type: Spontaneous
  Country: US (occurrence: US)
  Receive Date: 20130625
  Receipt Date: 20130625
  Transmission Date: 20140414
  Serious: Yes (Other)
  Sender: FDA-Public Use
  Company Number: US-ROCHE-1022330

PATIENT
  Sex: Male

DRUGS (1)
  1. ACCUTANE [Suspect]
     Indication: ACNE
     Route: 065
     Dates: start: 200004, end: 200312

REACTIONS (6)
  - Colitis ulcerative [Unknown]
  - Pyoderma gangrenosum [Unknown]
  - Acne [Unknown]
  - Epistaxis [Unknown]
  - Lip dry [Unknown]
  - Nasal dryness [Unknown]
